FAERS Safety Report 6286400-6 (Version None)
Quarter: 2009Q3

REPORT INFORMATION
  Report Type: 
  Country: None (occurrence: None)
  Receive Date: 20090727
  Receipt Date: 20090727
  Transmission Date: 20100115
  Serious: Yes (Other)
  Sender: FDA-Public Use
  Company Number: None

PATIENT
  Sex: Female
  Weight: 58.9676 kg

DRUGS (1)
  1. ALENDRONATE SODIUM [Suspect]
     Indication: OSTEOPENIA
     Dosage: 70MG 1 WEEKLY
     Dates: start: 20081031, end: 20090315

REACTIONS (6)
  - CHEST PAIN [None]
  - CHOKING [None]
  - HEART RATE IRREGULAR [None]
  - HYPOAESTHESIA [None]
  - JOINT STIFFNESS [None]
  - OESOPHAGEAL STENOSIS [None]
